FAERS Safety Report 20146631 (Version 2)
Quarter: 2021Q4

REPORT INFORMATION
  Report Type: Spontaneous
  Country: ZA (occurrence: ZA)
  Receive Date: 20211203
  Receipt Date: 20211231
  Transmission Date: 20220303
  Serious: Yes (Hospitalization)
  Sender: FDA-Public Use
  Company Number: ZA-NOVARTISPH-NVSC2021ZA272451

PATIENT
  Sex: Female

DRUGS (3)
  1. ACLASTA [Suspect]
     Active Substance: ZOLEDRONIC ACID
     Indication: Osteoporosis
     Dosage: 5 MG, Q12MO (5MG/100ML)
     Route: 041
     Dates: start: 20200107
  2. ACLASTA [Suspect]
     Active Substance: ZOLEDRONIC ACID
     Dosage: 5 MG, Q12MO (5MG/100ML)
     Route: 041
     Dates: start: 20201223
  3. ACLASTA [Suspect]
     Active Substance: ZOLEDRONIC ACID
     Dosage: UNK
     Route: 041

REACTIONS (1)
  - Hip fracture [Unknown]
